FAERS Safety Report 7321511-5 (Version None)
Quarter: 2011Q1

REPORT INFORMATION
  Report Type: 
  Country: None (occurrence: None)
  Receive Date: 20110223
  Receipt Date: 20110223
  Transmission Date: 20110831
  Serious: No
  Sender: FDA-Public Use
  Company Number: None

PATIENT
  Sex: Female
  Weight: 65 kg

DRUGS (3)
  1. CYCLOPHOSPHAMIDE [Suspect]
     Dosage: 1200 MG
  2. DOXORUBICIN HCL [Suspect]
     Dosage: 120 MG
  3. NOLVADEX [Suspect]
     Dosage: 10 MG

REACTIONS (3)
  - ANAEMIA OF CHRONIC DISEASE [None]
  - ANAEMIA [None]
  - MYELODYSPLASTIC SYNDROME [None]
